FAERS Safety Report 17695192 (Version 8)
Quarter: 2020Q4

REPORT INFORMATION
  Report Type: Report from Study
  Country: CA (occurrence: CA)
  Receive Date: 20200422
  Receipt Date: 20201209
  Transmission Date: 20210113
  Serious: Yes (Other)
  Sender: FDA-Public Use
  Company Number: CA-BRISTOL-MYERS SQUIBB COMPANY-BMS-2019-057321

PATIENT
  Age: 50 Year
  Sex: Female

DRUGS (5)
  1. ABATACEPT [Suspect]
     Active Substance: ABATACEPT
     Indication: RHEUMATOID ARTHRITIS
     Dosage: 1000 MILLIGRAM, 0, 2, 4 THEN EVERY 4 WEEKS
     Route: 042
     Dates: start: 20190530
  2. METFORMIN [Concomitant]
     Active Substance: METFORMIN HYDROCHLORIDE
     Indication: PRODUCT USED FOR UNKNOWN INDICATION
     Dosage: 1000 MILLIGRAM, BID
     Route: 048
  3. ABATACEPT [Suspect]
     Active Substance: ABATACEPT
     Dosage: 1000 MILLIGRAM, Q4WK
     Route: 042
     Dates: start: 20200309, end: 20201001
  4. NAPROXEN. [Concomitant]
     Active Substance: NAPROXEN
     Indication: PRODUCT USED FOR UNKNOWN INDICATION
     Dosage: 250 MILLIGRAM,PRN
     Route: 048
  5. DIAMICRON [Concomitant]
     Active Substance: GLICLAZIDE
     Indication: PRODUCT USED FOR UNKNOWN INDICATION
     Dosage: 60 MILLIGRAM (OD)
     Route: 048

REACTIONS (19)
  - Arthralgia [Unknown]
  - Oropharyngeal pain [Unknown]
  - Urinary tract infection [Recovered/Resolved]
  - Cough [Unknown]
  - Adrenal insufficiency [Unknown]
  - Humerus fracture [Unknown]
  - Gastrointestinal disorder [Unknown]
  - Rash papular [Unknown]
  - Condition aggravated [Unknown]
  - Gastroenteritis viral [Unknown]
  - Fall [Unknown]
  - Swelling [Unknown]
  - Malaise [Unknown]
  - Vomiting [Unknown]
  - Rash erythematous [Unknown]
  - Speech disorder [Unknown]
  - Emotional disorder [Unknown]
  - Stress [Unknown]
  - Psoriasis [Unknown]

NARRATIVE: CASE EVENT DATE: 20190827
